FAERS Safety Report 24973558 (Version 1)
Quarter: 2025Q1

REPORT INFORMATION
  Report Type: Spontaneous
  Country: GB (occurrence: GB)
  Receive Date: 20250216
  Receipt Date: 20250216
  Transmission Date: 20250409
  Serious: Yes (Other)
  Sender: JOHNSON AND JOHNSON
  Company Number: None

PATIENT
  Sex: Female

DRUGS (1)
  1. STELARA [Suspect]
     Active Substance: USTEKINUMAB
     Indication: Crohn^s disease
     Route: 058
     Dates: start: 20241231, end: 20250214

REACTIONS (2)
  - Headache [Not Recovered/Not Resolved]
  - Meningitis viral [Not Recovered/Not Resolved]

NARRATIVE: CASE EVENT DATE: 20241231
